FAERS Safety Report 13929268 (Version 1)
Quarter: 2017Q3

REPORT INFORMATION
  Report Type: Report from Study
  Country: None (occurrence: US)
  Receive Date: 20170901
  Receipt Date: 20170901
  Transmission Date: 20171127
  Serious: Yes (Hospitalization, Other)
  Sender: FDA-Public Use
  Company Number: US-ABBVIE-16K-163-1782417-00

PATIENT
  Age: 48 Year
  Sex: Female

DRUGS (1)
  1. HUMIRA [Suspect]
     Active Substance: ADALIMUMAB
     Indication: CROHN^S DISEASE
     Route: 058
     Dates: start: 201507, end: 2016

REACTIONS (8)
  - Intestinal resection [Recovered/Resolved]
  - Post procedural inflammation [Unknown]
  - Lymphadenopathy [Unknown]
  - Abdominal distension [Unknown]
  - Hernia [Recovering/Resolving]
  - Fungal infection [Recovering/Resolving]
  - Abdominal hernia infection [Recovering/Resolving]
  - Diastasis recti abdominis [Unknown]

NARRATIVE: CASE EVENT DATE: 2016
